FAERS Safety Report 23473237 (Version 1)
Quarter: 2024Q1

REPORT INFORMATION
  Report Type: Spontaneous
  Country: JP (occurrence: JP)
  Receive Date: 20240203
  Receipt Date: 20240203
  Transmission Date: 20240410
  Serious: Yes (Death)
  Sender: FDA-Public Use
  Company Number: JP-STRIDES ARCOLAB LIMITED-2024SP001129

PATIENT
  Age: 60 Year
  Sex: Male

DRUGS (15)
  1. HYDROCORTISONE [Suspect]
     Active Substance: HYDROCORTISONE
     Indication: Hypopituitarism
     Dosage: 20 MILLIGRAM PER DAY
     Route: 065
  2. HYDROCORTISONE [Suspect]
     Active Substance: HYDROCORTISONE
     Indication: Adrenal insufficiency
     Dosage: 50 MILLIGRAM PER DAY
     Route: 065
  3. PFIZER-BIONTECH COVID-19 VACCINE [Suspect]
     Active Substance: TOZINAMERAN
     Indication: COVID-19 immunisation
     Dosage: UNK
     Route: 065
  4. TS-1 [Concomitant]
     Active Substance: GIMERACIL\OTERACIL POTASSIUM\TEGAFUR
     Indication: Gastric cancer stage IV
     Dosage: 40 MILLIGRAM/SQ. METER, CYCLICAL (RECEIVED TWICE DAILY ON DAYS 1-14 OF THE CYCLE UNDER FIRST-LINE CH
     Route: 048
  5. TS-1 [Concomitant]
     Active Substance: GIMERACIL\OTERACIL POTASSIUM\TEGAFUR
     Indication: Metastases to liver
  6. OXALIPLATIN [Concomitant]
     Active Substance: OXALIPLATIN
     Indication: Gastric cancer stage IV
     Dosage: 130 MILLIGRAM/SQ. METER, CYCLICAL (RECEIVED ON DAY 1 OF THE CYCLE UNDER FIRST-LINE CHEMOTHERAPY)
     Route: 042
  7. OXALIPLATIN [Concomitant]
     Active Substance: OXALIPLATIN
     Indication: Metastases to liver
     Dosage: 130 MILLIGRAM/SQ. METER, CYCLICAL (RECEIVED ON DAY 1 OF THE CYCLE, UNDER CAPOX REGIMEN)
     Route: 042
  8. NIVOLUMAB [Concomitant]
     Active Substance: NIVOLUMAB
     Indication: Gastric cancer stage IV
     Dosage: 360 MILLIGRAM/SQ. METER, EVERY 3 WEEKS
     Route: 065
  9. NIVOLUMAB [Concomitant]
     Active Substance: NIVOLUMAB
     Indication: Metastases to liver
  10. CAPECITABINE [Concomitant]
     Active Substance: CAPECITABINE
     Indication: Gastric cancer stage IV
     Dosage: 1000 MILLIGRAM/SQ. METER, CYCLICAL (RECEIVED TWICE DAILY ON DAYS 1-14 OF THE CYCLE, UNDER CAPOX REGI
     Route: 048
  11. CAPECITABINE [Concomitant]
     Active Substance: CAPECITABINE
     Indication: Metastases to liver
  12. PACLITAXEL [Concomitant]
     Active Substance: PACLITAXEL
     Indication: Gastric cancer stage IV
     Dosage: 100 MILLIGRAM/SQ. METER, CYCLICAL (RECEIVED ON DAY 1, 8 AND 15 OF THE CYCLE UNDER SECOND-LINE CHEMOT
     Route: 042
  13. PACLITAXEL [Concomitant]
     Active Substance: PACLITAXEL
     Indication: Metastases to liver
  14. RAMUCIRUMAB [Concomitant]
     Active Substance: RAMUCIRUMAB
     Indication: Gastric cancer stage IV
     Dosage: 8 MILLIGRAM/KILOGRAM, CYCLICAL (RECEIVED ON DAY 1 AND 15 OF THE CYCLE UNDER SECOND-LINE CHEMOTHERAPY
     Route: 042
  15. RAMUCIRUMAB [Concomitant]
     Active Substance: RAMUCIRUMAB
     Indication: Metastases to liver

REACTIONS (3)
  - Fulminant type 1 diabetes mellitus [Fatal]
  - Diabetic ketoacidosis [Fatal]
  - Cardio-respiratory arrest [Fatal]
